FAERS Safety Report 6783392-8 (Version None)
Quarter: 2010Q2

REPORT INFORMATION
  Report Type: 
  Country: None (occurrence: None)
  Receive Date: 20100622
  Receipt Date: 20100615
  Transmission Date: 20101027
  Serious: Yes (Death)
  Sender: FDA-Public Use
  Company Number: PHHO2010US09107

PATIENT
  Sex: Male

DRUGS (6)
  1. DIOVAN [Suspect]
     Indication: ESSENTIAL HYPERTENSION
     Dosage: 60 MG, UNK
  2. DIOVAN [Suspect]
     Dosage: 320 MG
  3. IRON SULFATETHIAMIN COMPOUND TAB [Concomitant]
  4. MEVACOR [Concomitant]
  5. PROVENTIL [Concomitant]
  6. BENADRYL [Concomitant]

REACTIONS (1)
  - ARTERIOSCLEROSIS [None]
